FAERS Safety Report 6816583-8 (Version None)
Quarter: 2010Q3

REPORT INFORMATION
  Report Type: 
  Country: None (occurrence: None)
  Receive Date: 20100706
  Receipt Date: 20100706
  Transmission Date: 20110219
  Serious: No
  Sender: FDA-Public Use
  Company Number: None

PATIENT
  Sex: Male
  Weight: 28.5766 kg

DRUGS (2)
  1. CHILDREN'S MOTRIN [Suspect]
     Indication: PYREXIA
     Dosage: 2 1/2 TSP 6-8HRS MOUTH (ORAL)
     Route: 048
     Dates: start: 20100215, end: 20100219
  2. CHILDREN'S TYLENOL SUSPENSION [Suspect]
     Indication: PYREXIA
     Dosage: 2 1/2 TSP 4 HRS. MOUTH (ORAL)
     Route: 048
     Dates: start: 20100215, end: 20100219

REACTIONS (4)
  - HALLUCINATION [None]
  - HEART RATE INCREASED [None]
  - PRODUCT QUALITY ISSUE [None]
  - VERTIGO [None]
